FAERS Safety Report 8460512 (Version 2)
Quarter: 2012Q4

REPORT INFORMATION
  Report Type: 
  Country: US (occurrence: US)
  Receive Date: 20120315
  Receipt Date: 20121226
  Transmission Date: 20130627
  Serious: Yes (Congenital Anomaly, Other)
  Sender: FDA-Public Use
  Company Number: US-PFIZER INC-2012065837

PATIENT
  Sex: Female
  Weight: 3 kg

DRUGS (16)
  1. ZOLOFT [Suspect]
     Indication: ANXIETY
     Dosage: UNK
     Route: 064
     Dates: start: 1990
  2. ZOLOFT [Suspect]
     Indication: DEPRESSION
  3. ZOLOFT [Suspect]
     Indication: MOOD DISORDER NOS
  4. HUMALOG [Concomitant]
     Dosage: UNK
     Route: 064
  5. LABETALOL [Concomitant]
     Dosage: UNK
     Route: 064
  6. ZYVOX [Concomitant]
     Dosage: UNK
     Route: 064
  7. LEVAQUIN [Concomitant]
     Dosage: UNK
     Route: 064
  8. CIPRO [Concomitant]
     Dosage: UNK
     Route: 064
  9. MACROBID [Concomitant]
     Dosage: UNK
     Route: 064
  10. ZITHROMAX [Concomitant]
     Dosage: UNK
     Route: 064
  11. LOVENOX [Concomitant]
     Dosage: UNK
     Route: 064
  12. INSULIN [Concomitant]
     Dosage: UNK
     Route: 064
  13. ADVAIR [Concomitant]
     Dosage: UNK
     Route: 064
  14. ALBUTEROL [Concomitant]
     Dosage: UNK
     Route: 064
  15. PREVACID [Concomitant]
     Dosage: UNK
     Route: 064
  16. BABY ASPIRINE [Concomitant]
     Dosage: UNK
     Route: 064

REACTIONS (11)
  - Maternal exposure timing unspecified [Unknown]
  - Congenital anomaly [Unknown]
  - Cleft palate [Unknown]
  - Patent ductus arteriosus [Unknown]
  - Pulmonary hypertension [Unknown]
  - Respiratory distress [Unknown]
  - Cardiomyopathy [Unknown]
  - Atrial septal defect [Unknown]
  - Pierre Robin syndrome [Unknown]
  - Ventricular hypertrophy [Unknown]
  - Convulsion [Unknown]
